FAERS Safety Report 9168259 (Version 1)
Quarter: 2013Q1

REPORT INFORMATION
  Report Type: Spontaneous
  Country: US (occurrence: None)
  Receive Date: 20130304
  Receipt Date: 20130304
  Transmission Date: 20140127
  Serious: Yes (Other)
  Sender: FDA-Public Use
  Company Number: 0218681

PATIENT
  Age: 81 Year
  Sex: 0

DRUGS (17)
  1. TACHOSIL [Suspect]
     Indication: THERAPEUTIC PROCEDURE
     Dosage: 1 DOSAGE FORMS (1 PIECE 9.5 X 4.8 CM)
     Dates: start: 20090826
  2. CORDAREX (AMIODARONE HYDROCHLORIDE) [Concomitant]
  3. INSULIN (INSULIN) [Concomitant]
  4. LASIX (FUROSEMIDE) [Concomitant]
  5. PERFALGAN [Concomitant]
  6. RANITIDIN (RANITIDINE) [Concomitant]
  7. CEPHALEXIN (CEFALEXIN) [Concomitant]
  8. ASS (ACETYLSALICYLIC ACID) [Concomitant]
  9. DONEURIN (DOXEPIN HYDROCHLORIDE) [Concomitant]
  10. LISINOPRIL (LISINOPRIL) [Concomitant]
  11. NACI (SODIUM CHLORIDE) [Concomitant]
  12. SIMVASTATIN (SIMVASTATIN) [Concomitant]
  13. SIMVAHEXAL (SIMVASTATIN0 (20 MILLIGRAM) [Concomitant]
  14. GLEXAN (HEPARIN) [Concomitant]
  15. COROTROP (MILRINONE) [Concomitant]
  16. ATENEROL (ALL OTHER THERAPEUTIC PRODUCTS) [Concomitant]
  17. XANTIC (ALL OTHER THERAPEUTIC PRODUCTS) [Concomitant]

REACTIONS (1)
  - Medication residue present [None]
